FAERS Safety Report 13385010 (Version 1)
Quarter: 2017Q1

REPORT INFORMATION
  Report Type: Spontaneous
  Country: US (occurrence: US)
  Receive Date: 20170330
  Receipt Date: 20170330
  Transmission Date: 20170429
  Serious: Yes (Disabling)
  Sender: FDA-Public Use
  Company Number: None

PATIENT
  Age: 71 Year
  Sex: Male
  Weight: 90 kg

DRUGS (4)
  1. ZOSTAVAX [Suspect]
     Active Substance: VARICELLA-ZOSTER VIRUS STRAIN OKA/MERCK LIVE ANTIGEN
     Indication: HERPES ZOSTER
     Dosage: ?          QUANTITY:1 INJECTION(S);OTHER FREQUENCY:ONCE;?
     Route: 030
  2. ASPRIN [Concomitant]
     Active Substance: ASPIRIN
  3. MULTIVITAMIN [Concomitant]
     Active Substance: VITAMINS
  4. ZOSTAVAX [Suspect]
     Active Substance: VARICELLA-ZOSTER VIRUS STRAIN OKA/MERCK LIVE ANTIGEN
     Indication: PROPHYLAXIS
     Dosage: ?          QUANTITY:1 INJECTION(S);OTHER FREQUENCY:ONCE;?
     Route: 030

REACTIONS (5)
  - Musculoskeletal stiffness [None]
  - Contraindicated product administered [None]
  - Sensory loss [None]
  - Peripheral swelling [None]
  - Blood pressure increased [None]

NARRATIVE: CASE EVENT DATE: 20150620
